FAERS Safety Report 9853908 (Version 1)
Quarter: 2014Q1

REPORT INFORMATION
  Report Type: Report from Study
  Country: US (occurrence: US)
  Receive Date: 20140129
  Receipt Date: 20140129
  Transmission Date: 20141002
  Serious: No
  Sender: FDA-Public Use
  Company Number: US-GILEAD-2014-0093042

PATIENT
  Sex: Male

DRUGS (2)
  1. SOFOSBUVIR [Suspect]
     Indication: CHRONIC HEPATITIS C
     Dosage: 400 MG, UNK
     Route: 048
     Dates: start: 20140112
  2. METHADONE [Concomitant]

REACTIONS (3)
  - Mood swings [Unknown]
  - Depression [Unknown]
  - Paranoia [Unknown]
